FAERS Safety Report 24431263 (Version 2)
Quarter: 2024Q4

REPORT INFORMATION
  Report Type: Spontaneous
  Country: US (occurrence: US)
  Receive Date: 20241014
  Receipt Date: 20241019
  Transmission Date: 20250115
  Serious: Yes (Life-Threatening, Hospitalization, Other)
  Sender: AUROBINDO
  Company Number: US-MLMSERVICE-20240923-PI203697-00034-1

PATIENT
  Age: 78 Year
  Sex: Female

DRUGS (1)
  1. AMIODARONE HYDROCHLORIDE [Suspect]
     Active Substance: AMIODARONE HYDROCHLORIDE
     Indication: Product used for unknown indication
     Dosage: UNK
     Route: 065

REACTIONS (4)
  - Hypersensitivity pneumonitis [Unknown]
  - Acute respiratory failure [Unknown]
  - Pulmonary hypertension [Unknown]
  - Pulmonary toxicity [Unknown]
